FAERS Safety Report 9379764 (Version 1)
Quarter: 2013Q3

REPORT INFORMATION
  Report Type: Spontaneous
  Country: FR (occurrence: FR)
  Receive Date: 20130702
  Receipt Date: 20130702
  Transmission Date: 20140515
  Serious: Yes (Other)
  Sender: FDA-Public Use
  Company Number: PHHY2013FR065678

PATIENT
  Age: 41 Year
  Sex: Male

DRUGS (6)
  1. RIFAMPICIN [Suspect]
     Indication: DISSEMINATED TUBERCULOSIS
  2. CHOLECALCIFEROL [Suspect]
     Indication: VITAMIN D DEFICIENCY
     Dosage: 100000 IU, UNK
  3. VITAMIN D//ERGOCALCIFEROL [Suspect]
     Indication: VITAMIN D DEFICIENCY
     Dosage: 400 IU, UNK
  4. ALZIDE//PYRAZINAMIDE [Concomitant]
     Indication: DISSEMINATED TUBERCULOSIS
  5. ISONIAZID [Concomitant]
     Indication: DISSEMINATED TUBERCULOSIS
  6. ETHAMBUTOL [Concomitant]
     Indication: DISSEMINATED TUBERCULOSIS

REACTIONS (4)
  - Haemolytic anaemia [Recovering/Resolving]
  - Confusional state [Recovering/Resolving]
  - Hypercalcaemia [Recovering/Resolving]
  - Overdose [Unknown]
